FAERS Safety Report 7953011-3 (Version None)
Quarter: 2011Q4

REPORT INFORMATION
  Report Type: 
  Country: None (occurrence: None)
  Receive Date: 20111201
  Receipt Date: 20111129
  Transmission Date: 20120403
  Serious: Yes (Other)
  Sender: FDA-Public Use
  Company Number: JP-PFIZER INC-2011291585

PATIENT
  Sex: Male

DRUGS (2)
  1. LYRICA [Suspect]
     Indication: POST HERPETIC NEURALGIA
     Dosage: 150 MG, PER DAY
     Route: 048
     Dates: end: 20111117
  2. LYRICA [Suspect]
     Dosage: 300 MG, PER DAY
     Route: 048
     Dates: start: 20111118

REACTIONS (3)
  - ALTERED STATE OF CONSCIOUSNESS [None]
  - NAUSEA [None]
  - DRUG INEFFECTIVE [None]
